FAERS Safety Report 14018702 (Version 2)
Quarter: 2018Q1

REPORT INFORMATION
  Report Type: Spontaneous
  Country: US (occurrence: US)
  Receive Date: 20170928
  Receipt Date: 20180105
  Transmission Date: 20180508
  Serious: No
  Sender: FDA-Public Use
  Company Number: US-PFIZER INC-2017415741

PATIENT
  Age: 55 Year
  Sex: Female
  Weight: 77.11 kg

DRUGS (3)
  1. IBUPROFEN. [Suspect]
     Active Substance: IBUPROFEN
     Dosage: 800 MG, UNK
     Dates: start: 20170825
  2. IBUPROFEN. [Suspect]
     Active Substance: IBUPROFEN
     Indication: PAIN
     Dosage: 800 MG, 2X/DAY
  3. IBUPROFEN. [Suspect]
     Active Substance: IBUPROFEN
     Dosage: 800 MG, 3X/DAY
     Dates: start: 2017

REACTIONS (2)
  - Drug effect incomplete [Unknown]
  - Overdose [Unknown]

NARRATIVE: CASE EVENT DATE: 2017
